FAERS Safety Report 18225919 (Version 4)
Quarter: 2022Q2

REPORT INFORMATION
  Report Type: Spontaneous
  Country: FR (occurrence: FR)
  Receive Date: 20200903
  Receipt Date: 20220624
  Transmission Date: 20220721
  Serious: Yes (Other)
  Sender: FDA-Public Use
  Company Number: FR-VIIV HEALTHCARE LIMITED-33335

PATIENT

DRUGS (1)
  1. TRIUMEQ [Suspect]
     Active Substance: ABACAVIR SULFATE\DOLUTEGRAVIR SODIUM\LAMIVUDINE
     Indication: Product used for unknown indication
     Dosage: 1 DF, QD, TABLET

REACTIONS (6)
  - Osteonecrosis [Unknown]
  - Intervertebral disc protrusion [Unknown]
  - Arthrodesis [Unknown]
  - Bone demineralisation [Unknown]
  - Neck pain [Unknown]
  - Condition aggravated [Unknown]
